FAERS Safety Report 15673684 (Version 1)
Quarter: 2018Q4

REPORT INFORMATION
  Report Type: Spontaneous
  Country: IT (occurrence: IT)
  Receive Date: 20181129
  Receipt Date: 20181129
  Transmission Date: 20190205
  Serious: Yes (Other)
  Sender: FDA-Public Use
  Company Number: PHHY2018IT168656

PATIENT
  Age: 73 Year
  Sex: Male

DRUGS (2)
  1. MEKINIST [Concomitant]
     Active Substance: TRAMETINIB DIMETHYL SULFOXIDE
     Indication: MALIGNANT MELANOMA
     Dosage: 2 MG, CYCLIC
     Route: 048
     Dates: start: 20141030
  2. TAFINLAR [Suspect]
     Active Substance: DABRAFENIB MESYLATE
     Indication: MALIGNANT MELANOMA
     Dosage: 75 MG, CYCLIC
     Route: 048
     Dates: start: 20141030

REACTIONS (4)
  - Anaphylactic reaction [Recovered/Resolved]
  - Lip oedema [Recovered/Resolved]
  - Face oedema [Recovered/Resolved]
  - Pruritus generalised [Recovered/Resolved]

NARRATIVE: CASE EVENT DATE: 20171004
